FAERS Safety Report 14740618 (Version 1)
Quarter: 2018Q2

REPORT INFORMATION
  Report Type: Spontaneous
  Country: US (occurrence: US)
  Receive Date: 20180404
  Receipt Date: 20180404
  Transmission Date: 20180711
  Serious: Yes (Life-Threatening, Hospitalization, Disabling)
  Sender: FDA-Public Use
  Company Number: None

PATIENT
  Age: 26 Year
  Sex: Female
  Weight: 80.29 kg

DRUGS (7)
  1. PREDNISONE. [Concomitant]
     Active Substance: PREDNISONE
  2. TYLENOL [Concomitant]
     Active Substance: ACETAMINOPHEN
  3. NIFEDIPINE. [Concomitant]
     Active Substance: NIFEDIPINE
  4. WARFARIN [Suspect]
     Active Substance: WARFARIN
  5. MIRENA [Suspect]
     Active Substance: LEVONORGESTREL
     Dates: start: 20170113, end: 20180328
  6. PLAQUENIL [Concomitant]
     Active Substance: HYDROXYCHLOROQUINE SULFATE
  7. SILDENIFIL [Concomitant]

REACTIONS (26)
  - Rash [None]
  - Pyrexia [None]
  - Heart rate increased [None]
  - Alopecia [None]
  - Raynaud^s phenomenon [None]
  - Influenza like illness [None]
  - Deep vein thrombosis [None]
  - Gangrene [None]
  - Hypertension [None]
  - Asthenia [None]
  - Pain [None]
  - Toe amputation [None]
  - Oedema [None]
  - Skin discolouration [None]
  - Tongue ulceration [None]
  - Weight decreased [None]
  - Fatigue [None]
  - Rash pruritic [None]
  - Finger amputation [None]
  - Arthralgia [None]
  - Malaise [None]
  - Bedridden [None]
  - Dry skin [None]
  - Systemic lupus erythematosus [None]
  - Skin ulcer [None]
  - Peripheral circulatory failure [None]

NARRATIVE: CASE EVENT DATE: 20170113
